FAERS Safety Report 7530005-3 (Version None)
Quarter: 2011Q2

REPORT INFORMATION
  Report Type: 
  Country: None (occurrence: None)
  Receive Date: 20110607
  Receipt Date: 20110107
  Transmission Date: 20111010
  Serious: Yes (Other)
  Sender: FDA-Public Use
  Company Number: US-BAYER-201027049NA

PATIENT
  Age: 38 Year
  Sex: Female
  Weight: 81.633 kg

DRUGS (8)
  1. INDERAL [Concomitant]
     Indication: PRODUCT USED FOR UNKNOWN INDICATION
     Dosage: 60 MG, UNK
     Route: 048
     Dates: start: 20070723
  2. DARVOCET-N 50 [Concomitant]
  3. YAZ [Suspect]
     Indication: MENSTRUATION IRREGULAR
     Dosage: 1 DF, QD
     Route: 048
     Dates: start: 20090603, end: 20090831
  4. IBUPROFEN [Concomitant]
     Indication: UNEVALUABLE EVENT
     Dosage: 400 MG, UNK
  5. PEPCID AC [Concomitant]
     Indication: UNEVALUABLE EVENT
     Dosage: 20 MG, UNK
  6. MIDRIN [Concomitant]
     Indication: PRODUCT USED FOR UNKNOWN INDICATION
     Dosage: UNK
     Route: 048
     Dates: start: 20070723
  7. YAZ [Suspect]
     Indication: MENSTRUAL CYCLE MANAGEMENT
  8. MULTI-VITAMIN [Concomitant]
     Indication: PRODUCT USED FOR UNKNOWN INDICATION
     Dosage: UNK
     Route: 048
     Dates: start: 20071004

REACTIONS (12)
  - DECREASED APPETITE [None]
  - CHOLECYSTITIS CHRONIC [None]
  - DIARRHOEA [None]
  - NAUSEA [None]
  - CHOLELITHIASIS [None]
  - ABDOMINAL DISCOMFORT [None]
  - PAIN [None]
  - GASTROINTESTINAL DISORDER [None]
  - DYSPEPSIA [None]
  - GALLBLADDER CHOLESTEROLOSIS [None]
  - BILIARY COLIC [None]
  - ABDOMINAL PAIN [None]
